FAERS Safety Report 12860693 (Version 1)
Quarter: 2016Q4

REPORT INFORMATION
  Report Type: Spontaneous
  Country: MX (occurrence: MX)
  Receive Date: 20161019
  Receipt Date: 20161019
  Transmission Date: 20170207
  Serious: Yes (Hospitalization)
  Sender: FDA-Public Use
  Company Number: MX-SA-2015SA083768

PATIENT
  Sex: Female

DRUGS (2)
  1. ASPIRINA PROTECT [Concomitant]
     Active Substance: ASPIRIN
     Route: 048
  2. CLEXANE [Suspect]
     Active Substance: ENOXAPARIN SODIUM
     Indication: THROMBOSIS PROPHYLAXIS
     Route: 058
     Dates: start: 20150609

REACTIONS (5)
  - Pyrexia [Recovered/Resolved]
  - Abortion [Recovered/Resolved]
  - Hyperhidrosis [Recovered/Resolved]
  - Exposure during pregnancy [Unknown]
  - Palpitations [Recovered/Resolved]

NARRATIVE: CASE EVENT DATE: 201506
